FAERS Safety Report 7759359-X (Version None)
Quarter: 2011Q3

REPORT INFORMATION
  Report Type: 
  Country: None (occurrence: None)
  Receive Date: 20110919
  Receipt Date: 20110906
  Transmission Date: 20111222
  Serious: No
  Sender: FDA-Public Use
  Company Number: US-JNJFOC-20110904062

PATIENT
  Sex: Male
  Weight: 122.47 kg

DRUGS (9)
  1. UNKNOWN MEDICATION [Concomitant]
     Indication: FLUID RETENTION
     Route: 048
     Dates: start: 20080101
  2. UNKNOWN CHOLESTEROL MEDICATION [Concomitant]
     Indication: BLOOD CHOLESTEROL INCREASED
     Route: 048
     Dates: start: 20090101
  3. VITAMIN TAB [Concomitant]
     Indication: NUTRITIONAL SUPPORT
     Route: 048
     Dates: start: 20070101
  4. OXYCODONE HCL [Concomitant]
     Indication: PAIN
     Route: 048
  5. GABAPENTIN [Concomitant]
     Indication: HYPOAESTHESIA
     Route: 048
     Dates: start: 20070101
  6. CINNAMON [Concomitant]
     Indication: NUTRITIONAL SUPPORT
     Route: 048
  7. FISH OIL [Concomitant]
     Indication: MEDICAL DIET
     Route: 048
  8. DURAGESIC-100 [Suspect]
     Indication: BACK PAIN
     Route: 062
     Dates: start: 20101101
  9. LISINOPRIL [Concomitant]
     Indication: HYPERTENSION
     Route: 048
     Dates: start: 20080101

REACTIONS (4)
  - WRONG TECHNIQUE IN DRUG USAGE PROCESS [None]
  - DERMATITIS CONTACT [None]
  - WEIGHT DECREASED [None]
  - PRODUCT ADHESION ISSUE [None]
